FAERS Safety Report 17991972 (Version 1)
Quarter: 2020Q3

REPORT INFORMATION
  Report Type: Spontaneous
  Country: RU (occurrence: RU)
  Receive Date: 20200708
  Receipt Date: 20200708
  Transmission Date: 20201103
  Serious: Yes (Other)
  Sender: FDA-Public Use
  Company Number: RU-ROCHE-2636315

PATIENT
  Age: 58 Year
  Sex: Male

DRUGS (3)
  1. CARBOPLATIN. [Concomitant]
     Active Substance: CARBOPLATIN
     Dosage: AUC5
     Route: 065
     Dates: start: 20170815
  2. ATEZOLIZUMAB. [Suspect]
     Active Substance: ATEZOLIZUMAB
     Indication: BLADDER CANCER
     Dosage: 26 CYCLES
     Route: 041
     Dates: start: 20170815, end: 201909
  3. GEMCITABINE. [Concomitant]
     Active Substance: GEMCITABINE
     Dosage: ON DAYS 1 AND 8
     Route: 065
     Dates: start: 20170815

REACTIONS (5)
  - Asthenia [Unknown]
  - Bladder cancer recurrent [Unknown]
  - Leukopenia [Unknown]
  - Anaemia [Unknown]
  - Thrombocytopenia [Unknown]

NARRATIVE: CASE EVENT DATE: 201710
